FAERS Safety Report 19836182 (Version 1)
Quarter: 2021Q3

REPORT INFORMATION
  Report Type: Spontaneous
  Country: US (occurrence: US)
  Receive Date: 20210915
  Receipt Date: 20210915
  Transmission Date: 20211014
  Serious: No
  Sender: FDA-Public Use
  Company Number: US-BIOHAVEN PHARMACEUTICALS-2021BHV01109

PATIENT
  Age: 55 Year
  Sex: Female
  Weight: 48.07 kg

DRUGS (3)
  1. UNSPECIFIED BETA BLOCKER [Concomitant]
     Active Substance: UNSPECIFIED INGREDIENT
  2. NURTEC ODT [Suspect]
     Active Substance: RIMEGEPANT SULFATE
     Dosage: 37.5 MG, AS NEEDED
     Route: 048
  3. NURTEC ODT [Suspect]
     Active Substance: RIMEGEPANT SULFATE
     Indication: MIGRAINE
     Dosage: 75 MG, AS NEEDED
     Route: 048

REACTIONS (6)
  - Vomiting [Unknown]
  - Therapeutic response shortened [Not Recovered/Not Resolved]
  - Wrong technique in product usage process [Not Recovered/Not Resolved]
  - Unevaluable event [Unknown]
  - Urticaria [Recovering/Resolving]
  - Pruritus [Not Recovered/Not Resolved]

NARRATIVE: CASE EVENT DATE: 20210821
